FAERS Safety Report 6857333-9 (Version None)
Quarter: 2010Q3

REPORT INFORMATION
  Report Type: 
  Country: None (occurrence: None)
  Receive Date: 20100719
  Receipt Date: 20100705
  Transmission Date: 20110219
  Serious: Yes (Life-Threatening, Hospitalization, Other)
  Sender: FDA-Public Use
  Company Number: FR-ELI_LILLY_AND_COMPANY-FR201007000718

PATIENT
  Age: 71 Year
  Sex: Male

DRUGS (4)
  1. ZYPREXA [Suspect]
     Dosage: 1 DF, DAILY (1/D)
     Route: 048
     Dates: end: 20100415
  2. TERCIAN [Concomitant]
     Dosage: 40 MG/ML, UNKNOWN
     Route: 048
     Dates: start: 20070101, end: 20100415
  3. DAFALGAN [Concomitant]
     Indication: BACK PAIN
     Dosage: UNK, UNKNOWN
     Route: 048
     Dates: start: 20100401, end: 20100415
  4. KETOPROFENE                        /00321701/ [Concomitant]
     Indication: BACK PAIN
     Dosage: UNK, UNKNOWN
     Route: 048
     Dates: start: 20100401, end: 20100415

REACTIONS (10)
  - ARTERIOSCLEROSIS [None]
  - COMA [None]
  - DEHYDRATION [None]
  - ELECTROENCEPHALOGRAM ABNORMAL [None]
  - HAEMOGLOBINAEMIA [None]
  - HYPERTHERMIA [None]
  - MUSCLE RIGIDITY [None]
  - PYRAMIDAL TRACT SYNDROME [None]
  - QUADRIPARESIS [None]
  - RENAL FAILURE [None]
